FAERS Safety Report 6294616-8 (Version None)
Quarter: 2009Q3

REPORT INFORMATION
  Report Type: 
  Country: None (occurrence: None)
  Receive Date: 20090803
  Receipt Date: 20090722
  Transmission Date: 20100115
  Serious: Yes (Other)
  Sender: FDA-Public Use
  Company Number: KR-ELI_LILLY_AND_COMPANY-KR200905005538

PATIENT
  Age: 69 Year
  Sex: Female

DRUGS (5)
  1. HUMALOG MIX 75/25 [Suspect]
     Indication: TYPE 2 DIABETES MELLITUS
     Dosage: 34 U, EACH MORNING
     Route: 065
     Dates: end: 20090625
  2. HUMALOG MIX 75/25 [Suspect]
     Dosage: 20 U, EACH EVENING
     Route: 065
     Dates: end: 20090716
  3. HUMALOG MIX 75/25 [Suspect]
     Dosage: 38 U, EACH MORNING
     Route: 065
     Dates: start: 20090625
  4. HUMALOG MIX 75/25 [Suspect]
     Dosage: 22 U, EACH EVENING
     Route: 065
     Dates: start: 20090716
  5. ANTIARRHYTHMICS, CLASS I AND III [Concomitant]

REACTIONS (3)
  - HYPERGLYCAEMIA [None]
  - STRABISMUS [None]
  - VISUAL IMPAIRMENT [None]
